FAERS Safety Report 8153477-2 (Version None)
Quarter: 2012Q1

REPORT INFORMATION
  Report Type: 
  Country: None (occurrence: None)
  Receive Date: 20120221
  Receipt Date: 20120213
  Transmission Date: 20120608
  Serious: Yes (Death, Life-Threatening, Other)
  Sender: FDA-Public Use
  Company Number: IT-ROXANE LABORATORIES, INC.-2012-RO-00652RO

PATIENT
  Age: 50 Year
  Sex: Female

DRUGS (7)
  1. FLUCONAZOLE [Suspect]
     Indication: CANDIDIASIS
     Route: 042
  2. MYCOPHENOLATE MOFETIL [Suspect]
     Indication: IMMUNOSUPPRESSION
  3. VANCOMYCIN [Suspect]
     Indication: CANDIDIASIS
  4. GANCICLOVIR [Suspect]
     Indication: CYTOMEGALOVIRUS INFECTION
  5. ANIDULAFUNGIN [Suspect]
     Indication: CANDIDIASIS
  6. TACROLIMUS [Suspect]
     Indication: IMMUNOSUPPRESSION
  7. PIPERACILLIN AND TAZOBACTAM [Suspect]
     Indication: CANDIDIASIS

REACTIONS (8)
  - URINARY TRACT INFECTION [None]
  - CYTOMEGALOVIRUS INFECTION [None]
  - DIARRHOEA [None]
  - LIVER INJURY [None]
  - HEPATIC FAILURE [None]
  - FUNGAL SEPSIS [None]
  - MONOCLONAL GAMMOPATHY [None]
  - HEPATITIS C [None]
